FAERS Safety Report 13642651 (Version 1)
Quarter: 2017Q2

REPORT INFORMATION
  Report Type: Spontaneous
  Country: US (occurrence: US)
  Receive Date: 20170612
  Receipt Date: 20170612
  Transmission Date: 20170830
  Serious: No
  Sender: FDA-Public Use
  Company Number: US-TEVA-686577USA

PATIENT

DRUGS (1)
  1. AMPHETAMINE W/DEXTROAMPHETAMINE [Suspect]
     Active Substance: AMPHETAMINE SULFATE\DEXTROAMPHETAMINE

REACTIONS (11)
  - Dyspepsia [Unknown]
  - Abdominal distension [Unknown]
  - Apathy [Unknown]
  - Chest pain [Unknown]
  - Sleep disorder [Unknown]
  - Fatigue [Unknown]
  - Weight increased [Unknown]
  - Drug ineffective [Unknown]
  - Lethargy [Unknown]
  - Diarrhoea [Unknown]
  - Anxiety [Unknown]
